FAERS Safety Report 9060207 (Version 1)
Quarter: 2013Q1

REPORT INFORMATION
  Report Type: Spontaneous
  Country: US (occurrence: None)
  Receive Date: 20130206
  Receipt Date: 20130206
  Transmission Date: 20140127
  Serious: Yes (Hospitalization)
  Sender: FDA-Public Use
  Company Number: None

PATIENT
  Age: 94 Year
  Sex: Male
  Weight: 77.11 kg

DRUGS (1)
  1. MYRBETRIQ [Suspect]
     Indication: POLLAKIURIA
     Dates: start: 20130123, end: 20130128

REACTIONS (5)
  - Oropharyngeal pain [None]
  - Stomatitis [None]
  - Anal ulcer [None]
  - Penile ulceration [None]
  - Eye ulcer [None]
